FAERS Safety Report 4640681-0 (Version None)
Quarter: 2005Q2

REPORT INFORMATION
  Report Type: 
  Country: None (occurrence: None)
  Receive Date: 20050419
  Receipt Date: 20050406
  Transmission Date: 20051028
  Serious: Yes (Hospitalization)
  Sender: FDA-Public Use
  Company Number: 2005054802

PATIENT
  Sex: Female

DRUGS (2)
  1. CABERGOLINE [Suspect]
     Indication: PARKINSON'S DISEASE
     Dosage: 4 MG (2 MG, EVERY DAY), ORAL
     Route: 048
  2. SINEMET [Concomitant]

REACTIONS (4)
  - ACCIDENT [None]
  - EYE INJURY [None]
  - FALL [None]
  - FRACTURE [None]
